FAERS Safety Report 19788383 (Version 1)
Quarter: 2021Q3

REPORT INFORMATION
  Report Type: Report from Study
  Country: US (occurrence: US)
  Receive Date: 20210903
  Receipt Date: 20210903
  Transmission Date: 20211014
  Serious: Yes (Other)
  Sender: FDA-Public Use
  Company Number: US-ASTRAZENECA-2021A703736

PATIENT
  Sex: Female

DRUGS (9)
  1. BIOTIN [Concomitant]
     Active Substance: BIOTIN
  2. MULTIVITAMIN [Concomitant]
     Active Substance: VITAMINS
  3. HYDROCHLOROTHIAZIDE. [Concomitant]
     Active Substance: HYDROCHLOROTHIAZIDE
  4. FISH OIL [Concomitant]
     Active Substance: FISH OIL
  5. LISINOPRIL. [Concomitant]
     Active Substance: LISINOPRIL
  6. LAMOTRIGINE. [Concomitant]
     Active Substance: LAMOTRIGINE
  7. VENLAFAXINE [Concomitant]
     Active Substance: VENLAFAXINE HYDROCHLORIDE
  8. LYNPARZA [Suspect]
     Active Substance: OLAPARIB
     Route: 048
  9. ZOFRAN [Concomitant]
     Active Substance: ONDANSETRON HYDROCHLORIDE

REACTIONS (2)
  - Brain neoplasm [Unknown]
  - Diarrhoea [Unknown]
